FAERS Safety Report 10668588 (Version 1)
Quarter: 2014Q4

REPORT INFORMATION
  Report Type: Spontaneous
  Country: DE (occurrence: DE)
  Receive Date: 20141222
  Receipt Date: 20141222
  Transmission Date: 20150529
  Serious: Yes (Other)
  Sender: FDA-Public Use
  Company Number: GXKR2014DE004751

PATIENT

DRUGS (3)
  1. HYDROCORTISON//HYDROCORTISONE [Concomitant]
     Indication: IMMUNE THROMBOCYTOPENIC PURPURA
     Dosage: MATERNAL DOSE 200 [MG ]
     Route: 064
     Dates: start: 20131126, end: 20131126
  2. PREDNISONE. [Suspect]
     Active Substance: PREDNISONE
     Indication: IMMUNE THROMBOCYTOPENIC PURPURA
     Dosage: MATERNAL DOSE: 70 [MG/D ]/ DOSAGE REDUCTION TO 10MG/D AT 14/11/2013
     Route: 064
     Dates: start: 20130826, end: 20131126
  3. FOLSAEURE [Concomitant]
     Active Substance: FOLIC ACID
     Indication: PROPHYLAXIS OF NEURAL TUBE DEFECT
     Route: 064
     Dates: start: 20130304, end: 20131126

REACTIONS (2)
  - Small for dates baby [Not Recovered/Not Resolved]
  - Weight gain poor [Not Recovered/Not Resolved]

NARRATIVE: CASE EVENT DATE: 20131126
